FAERS Safety Report 4407179-6 (Version None)
Quarter: 2004Q3

REPORT INFORMATION
  Report Type: 
  Country: None (occurrence: None)
  Receive Date: 20040721
  Receipt Date: 20040707
  Transmission Date: 20050211
  Serious: Yes (Hospitalization, Other)
  Sender: FDA-Public Use
  Company Number: USA-2004-0014869

PATIENT
  Sex: Male

DRUGS (8)
  1. SPECTRACEF [Suspect]
     Indication: BRONCHITIS ACUTE
     Dosage: 400 MG, BID, ORAL
     Route: 048
     Dates: start: 20040311, end: 20040321
  2. ZOCOR [Concomitant]
  3. DIOVAN ^CIBA-GEIGY^ (VALSARTAN) [Concomitant]
  4. HYDROCHLOROTHIAZIDE [Concomitant]
  5. GLUCOTROL [Concomitant]
  6. THEO-24 [Concomitant]
  7. ALBUTEROL [Concomitant]
  8. ADVAIR DISKUS (FLUTICASONE PROPIONATE, SALMETEROL XINAFOATE) [Concomitant]

REACTIONS (4)
  - CLOSTRIDIUM COLITIS [None]
  - DIARRHOEA [None]
  - DRUG INEFFECTIVE [None]
  - RENAL FAILURE [None]
